FAERS Safety Report 5812595-1 (Version None)
Quarter: 2008Q3

REPORT INFORMATION
  Report Type: 
  Country: None (occurrence: None)
  Receive Date: 20080717
  Receipt Date: 20080709
  Transmission Date: 20090109
  Serious: Yes (Death, Disabling, Other)
  Sender: FDA-Public Use
  Company Number: US-ALLERGAN-0808409US

PATIENT
  Sex: Female

DRUGS (2)
  1. BOTOX [Suspect]
     Indication: MUSCLE SPASTICITY
     Dosage: A SERIES
     Route: 030
  2. BOTOX [Suspect]
     Indication: CEREBRAL PALSY

REACTIONS (4)
  - CONVULSION [None]
  - DEATH [None]
  - MUSCULAR WEAKNESS [None]
  - PNEUMONIA [None]
